FAERS Safety Report 26146940 (Version 3)
Quarter: 2025Q4

REPORT INFORMATION
  Report Type: Report from Study
  Country: CO (occurrence: CO)
  Receive Date: 20251211
  Receipt Date: 20251230
  Transmission Date: 20260117
  Serious: Yes (Death, Other)
  Sender: ALEXION PHARMACEUTICALS
  Company Number: CO-AstraZeneca-CH-01007026A

PATIENT
  Sex: Male

DRUGS (1)
  1. ACALABRUTINIB [Suspect]
     Active Substance: ACALABRUTINIB
     Indication: Chronic lymphocytic leukaemia
     Dosage: 100 MILLIGRAM, Q12H
     Route: 061
     Dates: start: 20211202

REACTIONS (1)
  - Myocardial infarction [Fatal]
